FAERS Safety Report 6671055-9 (Version None)
Quarter: 2010Q2

REPORT INFORMATION
  Report Type: 
  Country: None (occurrence: None)
  Receive Date: 20100407
  Receipt Date: 20100329
  Transmission Date: 20101027
  Serious: Yes (Other)
  Sender: FDA-Public Use
  Company Number: CH-ASTRAZENECA-2010SE14286

PATIENT
  Age: 83 Year

DRUGS (1)
  1. BELOC ZOC [Suspect]
     Route: 048

REACTIONS (1)
  - OEDEMA [None]
